FAERS Safety Report 17560110 (Version 1)
Quarter: 2020Q1

REPORT INFORMATION
  Report Type: Spontaneous
  Country: US (occurrence: US)
  Receive Date: 20200318
  Receipt Date: 20200318
  Transmission Date: 20200409
  Serious: No
  Sender: FDA-Public Use
  Company Number: None

PATIENT
  Age: 65 Year
  Sex: Female
  Weight: 75.6 kg

DRUGS (6)
  1. ADVAIR PRO AIR INHALER [Concomitant]
  2. CALCIUM [Concomitant]
     Active Substance: CALCIUM
  3. FLUTICASONE PROPIONATE AND SALMETEROL DISKUS [Suspect]
     Active Substance: FLUTICASONE PROPIONATE\SALMETEROL XINAFOATE
     Indication: ASTHMA
     Dosage: ?          OTHER STRENGTH:MCG;QUANTITY:1 PUFF(S);?
     Route: 048
     Dates: start: 20200309, end: 20200312
  4. VITAMIN D [Concomitant]
     Active Substance: VITAMIN D NOS
  5. FISH OIL [Concomitant]
     Active Substance: FISH OIL
  6. MULTIVITAMIN [Concomitant]
     Active Substance: VITAMINS

REACTIONS (6)
  - Oropharyngeal pain [None]
  - Product substitution issue [None]
  - Pharyngeal erythema [None]
  - Throat irritation [None]
  - Chest discomfort [None]
  - Wheezing [None]

NARRATIVE: CASE EVENT DATE: 20200309
